FAERS Safety Report 12985726 (Version 1)
Quarter: 2016Q4

REPORT INFORMATION
  Report Type: Spontaneous
  Country: US (occurrence: US)
  Receive Date: 20161130
  Receipt Date: 20161130
  Transmission Date: 20170207
  Serious: Yes (Other)
  Sender: FDA-Public Use
  Company Number: US-AMGEN-USASP2016167712

PATIENT
  Age: 70 Year
  Sex: Female

DRUGS (2)
  1. TAXOTERE [Suspect]
     Active Substance: DOCETAXEL
     Indication: PRODUCT USED FOR UNKNOWN INDICATION
     Dosage: UNK
     Route: 065
  2. NEULASTA [Suspect]
     Active Substance: PEGFILGRASTIM
     Indication: FEBRILE NEUTROPENIA
     Dosage: UNK
     Route: 065
     Dates: start: 2014

REACTIONS (8)
  - Wrist fracture [Recovering/Resolving]
  - Loss of consciousness [Unknown]
  - Rib fracture [Recovering/Resolving]
  - Fall [Unknown]
  - Herpes zoster [Not Recovered/Not Resolved]
  - Circumstance or information capable of leading to medication error [Unknown]
  - Visual acuity reduced [Not Recovered/Not Resolved]
  - Cognitive disorder [Not Recovered/Not Resolved]

NARRATIVE: CASE EVENT DATE: 2016
